FAERS Safety Report 17932301 (Version 2)
Quarter: 2020Q4

REPORT INFORMATION
  Report Type: Spontaneous
  Country: CN (occurrence: CN)
  Receive Date: 20200624
  Receipt Date: 20201111
  Transmission Date: 20210113
  Serious: Yes (Death)
  Sender: FDA-Public Use
  Company Number: CN-QUAGEN-2020QUALIT00050

PATIENT
  Age: 50 Year
  Sex: Female

DRUGS (4)
  1. MEROPENEM. [Interacting]
     Active Substance: MEROPENEM
     Route: 065
  2. CORTICOSTEROID NOS [Interacting]
     Active Substance: CORTICOSTEROID NOS
     Route: 065
  3. PROPYLTHIOURACIL TABLETS USP [Suspect]
     Active Substance: PROPYLTHIOURACIL
     Indication: BASEDOW^S DISEASE
     Route: 065
  4. CEFOPERAZONA/SULBACTAM [Interacting]
     Active Substance: CEFOPERAZONE SODIUM\SULBACTAM SODIUM
     Route: 065

REACTIONS (5)
  - Tonsillitis [Fatal]
  - Hyperthyroidism [Fatal]
  - Cardiac disorder [Fatal]
  - Thyrotoxic crisis [Fatal]
  - Agranulocytosis [Fatal]
